FAERS Safety Report 19194176 (Version 2)
Quarter: 2021Q4

REPORT INFORMATION
  Report Type: Spontaneous
  Country: US (occurrence: US)
  Receive Date: 20210429
  Receipt Date: 20211016
  Transmission Date: 20220304
  Serious: Yes (Death, Hospitalization)
  Sender: FDA-Public Use
  Company Number: US-DRREDDYS-USA/USA/21/0134921

PATIENT
  Age: 32 Year
  Sex: Male

DRUGS (2)
  1. COLCHICINE [Suspect]
     Active Substance: COLCHICINE
     Indication: Myocarditis
     Dosage: 0.39 MG/KG
     Route: 048
  2. COLCHICINE [Suspect]
     Active Substance: COLCHICINE
     Indication: Pericarditis
     Dosage: 0.65 MG/KG
     Route: 048

REACTIONS (23)
  - Multiple organ dysfunction syndrome [Fatal]
  - Neutropenia [Unknown]
  - Cardiovascular insufficiency [Unknown]
  - Lactic acidosis [Unknown]
  - Hyperkalaemia [Unknown]
  - Hyperphosphataemia [Unknown]
  - Hypocalcaemia [Unknown]
  - Hypomagnesaemia [Unknown]
  - Hypoglycaemia [Unknown]
  - Toxicity to various agents [Unknown]
  - Rhabdomyolysis [Unknown]
  - Pancytopenia [Unknown]
  - Acute hepatic failure [Unknown]
  - Haemorrhage [Unknown]
  - Acute kidney injury [Unknown]
  - Catheter site haemorrhage [Unknown]
  - Mouth haemorrhage [Unknown]
  - Disseminated intravascular coagulation [Unknown]
  - Abdominal pain [Unknown]
  - Nausea [Unknown]
  - Vomiting [Unknown]
  - Diarrhoea [Unknown]
  - Overdose [Unknown]
